FAERS Safety Report 5262713-1 (Version None)
Quarter: 2007Q1

REPORT INFORMATION
  Report Type: 
  Country: None (occurrence: None)
  Receive Date: 20070312
  Receipt Date: 20070301
  Transmission Date: 20070707
  Serious: Yes (Death)
  Sender: FDA-Public Use
  Company Number: LB-SANOFI-SYNTHELABO-A01200702229

PATIENT
  Age: 75 Year
  Sex: Male
  Weight: 68 kg

DRUGS (5)
  1. AMLODIPINE [Concomitant]
     Indication: HYPERTENSION
     Route: 048
  2. CORVASAL [Concomitant]
     Indication: HYPERTENSION
     Route: 048
  3. INSULATARD [Concomitant]
     Indication: DIABETES MELLITUS
     Route: 058
  4. TRITACE [Concomitant]
     Indication: HYPERTENSION
     Route: 048
  5. PLAVIX [Suspect]
     Indication: CEREBROVASCULAR ACCIDENT PROPHYLAXIS
     Route: 048
     Dates: start: 20061224

REACTIONS (1)
  - CEREBROVASCULAR ACCIDENT [None]
